FAERS Safety Report 8240698-3 (Version None)
Quarter: 2012Q1

REPORT INFORMATION
  Report Type: 
  Country: None (occurrence: None)
  Receive Date: 20120314
  Receipt Date: 20120124
  Transmission Date: 20120608
  Serious: Yes (Hospitalization)
  Sender: FDA-Public Use
  Company Number: PHHY2011US47126

PATIENT
  Age: 24 Year
  Sex: Female

DRUGS (6)
  1. BACLOFEN (BACLFEN) [Concomitant]
  2. AMBIEN [Concomitant]
  3. DEPAKOTE [Concomitant]
  4. ACETAMINOPHEN [Concomitant]
  5. MOTRIN [Concomitant]
  6. EXTAVIA [Suspect]
     Indication: MULTIPLE SCLEROSIS
     Dosage: 0.25 MG, QOD, SUBCUTANEOUS
     Route: 058
     Dates: start: 20101214

REACTIONS (4)
  - CONVULSION [None]
  - FATIGUE [None]
  - AMNESIA [None]
  - MALAISE [None]
